FAERS Safety Report 12184198 (Version 1)
Quarter: 2016Q1

REPORT INFORMATION
  Report Type: Spontaneous
  Country: US (occurrence: None)
  Receive Date: 20160315
  Receipt Date: 20160315
  Transmission Date: 20160526
  Serious: No
  Sender: FDA-Public Use
  Company Number: None

PATIENT
  Age: 64 Year
  Sex: Female

DRUGS (1)
  1. XALKORI [Suspect]
     Active Substance: CRIZOTINIB
     Indication: LUNG NEOPLASM MALIGNANT
     Dosage: 1 CAPSULE BID ORAL
     Route: 048
     Dates: start: 20151223, end: 20160301

REACTIONS (1)
  - No therapeutic response [None]

NARRATIVE: CASE EVENT DATE: 20160301
